FAERS Safety Report 5779652-X (Version None)
Quarter: 2008Q2

REPORT INFORMATION
  Report Type: 
  Country: None (occurrence: None)
  Receive Date: 20080601
  Receipt Date: 20080312
  Transmission Date: 20081010
  Serious: No
  Sender: FDA-Public Use
  Company Number: US200803002883

PATIENT
  Age: 75 Year
  Sex: Female

DRUGS (4)
  1. BYETTA [Suspect]
     Dosage: 5 UG, 2/D, SUBCUTANEOUS ; 10 UG, 2/D, SUBCUTANEOUS
     Route: 058
     Dates: start: 20080201, end: 20080302
  2. BYETTA [Suspect]
     Dosage: 5 UG, 2/D, SUBCUTANEOUS ; 10 UG, 2/D, SUBCUTANEOUS
     Route: 058
     Dates: start: 20080303
  3. METFORMIN HCL [Concomitant]
  4. EXENATIDE 5MCG PEN,DISPOSABLE DEVICE (EXENATIDE PEN (5MCG)) PEN,DISPOS [Concomitant]

REACTIONS (3)
  - BLOOD GLUCOSE INCREASED [None]
  - DECREASED APPETITE [None]
  - INCORRECT DOSE ADMINISTERED [None]
